FAERS Safety Report 13707656 (Version 1)
Quarter: 2017Q2

REPORT INFORMATION
  Report Type: Spontaneous
  Country: US (occurrence: US)
  Receive Date: 20170630
  Receipt Date: 20170630
  Transmission Date: 20170830
  Serious: Yes (Death, Other)
  Sender: FDA-Public Use
  Company Number: US-TEVA-783171USA

PATIENT
  Age: 63 Year
  Sex: Female

DRUGS (4)
  1. OLAPARIB [Suspect]
     Active Substance: OLAPARIB
     Indication: PANCREATIC CARCINOMA
     Route: 048
  2. VELIPARIB [Suspect]
     Active Substance: VELIPARIB
     Indication: PANCREATIC CARCINOMA
     Route: 048
     Dates: start: 20140605
  3. OXALIPLATIN INJECTION 50MG/10 ML+100MG/20ML [Suspect]
     Active Substance: OXALIPLATIN
     Indication: PANCREATIC CARCINOMA
     Dosage: 85MG/M2 DAY 1, EVERY 2 WEEKS
     Route: 065
     Dates: start: 20140605
  4. FLUOROURACIL. [Concomitant]
     Active Substance: FLUOROURACIL
     Indication: PANCREATIC CARCINOMA
     Dosage: 2400MG/M2 DAYS 1-3, EVERY 2 WEEKS
     Route: 050
     Dates: start: 20140605

REACTIONS (4)
  - Neuropathy peripheral [Unknown]
  - Drug resistance [Unknown]
  - Vomiting [Unknown]
  - Nausea [Unknown]
